FAERS Safety Report 6267267-9 (Version None)
Quarter: 2009Q3

REPORT INFORMATION
  Report Type: 
  Country: None (occurrence: None)
  Receive Date: 20090714
  Receipt Date: 20090706
  Transmission Date: 20100115
  Serious: Yes (Hospitalization)
  Sender: FDA-Public Use
  Company Number: ES-PFIZER INC-2009228658

PATIENT
  Age: 56 Year

DRUGS (1)
  1. SUTENT [Suspect]
     Indication: RENAL CANCER
     Dosage: UNK
     Route: 048
     Dates: start: 20071101, end: 20071113

REACTIONS (3)
  - DIARRHOEA [None]
  - HEPATITIS [None]
  - HYPERTENSION [None]
